FAERS Safety Report 15995312 (Version 1)
Quarter: 2019Q1

REPORT INFORMATION
  Report Type: Spontaneous
  Country: US (occurrence: US)
  Receive Date: 20190222
  Receipt Date: 20190222
  Transmission Date: 20190418
  Serious: No
  Sender: FDA-Public Use
  Company Number: US-009507513-1901USA012287

PATIENT
  Sex: Female
  Weight: 113.38 kg

DRUGS (12)
  1. MIFEPRISTONE [Suspect]
     Active Substance: MIFEPRISTONE
     Indication: CUSHING^S SYNDROME
     Dosage: 300 MILLIGRAM, QD
     Route: 048
     Dates: start: 20160401, end: 20160629
  2. MIFEPRISTONE [Suspect]
     Active Substance: MIFEPRISTONE
     Dosage: 600 MILLIGRAM, QD
     Route: 048
     Dates: start: 20160630, end: 20161021
  3. MIFEPRISTONE [Suspect]
     Active Substance: MIFEPRISTONE
     Dosage: 900 MILLIGRAM, QD
     Route: 048
     Dates: start: 20161022, end: 20170612
  4. MIFEPRISTONE [Suspect]
     Active Substance: MIFEPRISTONE
     Dosage: 1200 MILLIGRAM, QD
     Route: 048
     Dates: start: 20170613, end: 20180913
  5. METFORMIN [Concomitant]
     Active Substance: METFORMIN HYDROCHLORIDE
  6. COZAAR [Suspect]
     Active Substance: LOSARTAN POTASSIUM
     Dosage: UNK
     Dates: start: 201809
  7. VITAMIN D [Concomitant]
     Active Substance: CHOLECALCIFEROL
  8. MIFEPRISTONE [Suspect]
     Active Substance: MIFEPRISTONE
     Dosage: 1500 MILLIGRAM, QD
     Route: 048
     Dates: start: 20180914
  9. LEVOTHYROXINE SODIUM. [Concomitant]
     Active Substance: LEVOTHYROXINE SODIUM
  10. SEROQUEL [Concomitant]
     Active Substance: QUETIAPINE FUMARATE
  11. FENOFIBRATE. [Suspect]
     Active Substance: FENOFIBRATE
     Indication: PRODUCT USED FOR UNKNOWN INDICATION
     Dosage: UNK
     Dates: start: 201809
  12. EFFEXOR [Concomitant]
     Active Substance: VENLAFAXINE HYDROCHLORIDE

REACTIONS (6)
  - Hallucination [Unknown]
  - Formication [Unknown]
  - Rash [Unknown]
  - Vaginal haemorrhage [Unknown]
  - Insomnia [Recovered/Resolved]
  - Hypersomnia [Unknown]

NARRATIVE: CASE EVENT DATE: 2018
